FAERS Safety Report 8928341 (Version 1)
Quarter: 2012Q4

REPORT INFORMATION
  Report Type: 
  Country: DE (occurrence: DE)
  Receive Date: 20121128
  Receipt Date: 20121128
  Transmission Date: 20130627
  Serious: Yes (Other)
  Sender: FDA-Public Use
  Company Number: PHHY2012DE107576

PATIENT
  Age: 69 Year
  Sex: Female

DRUGS (5)
  1. CARBAMAZEPINE [Suspect]
     Indication: TRIGEMINAL NEURALGIA
     Dosage: 750 mg, day
  2. CARBAMAZEPINE [Suspect]
     Dosage: 300 mg, day
  3. GABAPENTIN [Suspect]
     Indication: TRIGEMINAL NEURALGIA
     Dosage: 3 DF of 800mg per day
  4. GABAPENTIN [Suspect]
     Dosage: 3 DF of 600mg per day
  5. GABAPENTIN [Suspect]
     Dosage: 1200 mg/day

REACTIONS (2)
  - Gait disturbance [Recovering/Resolving]
  - Pain [Recovering/Resolving]
